FAERS Safety Report 7183111-X (Version None)
Quarter: 2010Q4

REPORT INFORMATION
  Report Type: 
  Country: None (occurrence: None)
  Receive Date: 20101222
  Receipt Date: 20101210
  Transmission Date: 20110411
  Serious: Yes (Death, Life-Threatening, Hospitalization, Other)
  Sender: FDA-Public Use
  Company Number: US-GENZYME-CLOF-1000984

PATIENT
  Sex: Female
  Weight: 26 kg

DRUGS (21)
  1. CLOFARABINE [Suspect]
     Indication: ACUTE LYMPHOCYTIC LEUKAEMIA
     Dosage: 32 MG, QD
     Route: 042
     Dates: start: 20100514, end: 20100518
  2. ETOPOSIDE [Suspect]
     Indication: ACUTE LYMPHOCYTIC LEUKAEMIA
     Dosage: 80 MG, QD
     Route: 042
     Dates: start: 20100514, end: 20100518
  3. CYCLOPHOSPHAMIDE [Suspect]
     Indication: ACUTE LYMPHOCYTIC LEUKAEMIA
     Dosage: 350 MG, QD
     Dates: start: 20100514, end: 20100518
  4. ACYCLOVIR SODIUM [Concomitant]
     Indication: PROPHYLAXIS
     Dosage: 800 MG, UNK
     Route: 042
     Dates: start: 20100515, end: 20100519
  5. ACYCLOVIR SODIUM [Concomitant]
     Indication: INFECTION
     Dosage: UNK
     Route: 048
     Dates: start: 20100418, end: 20100519
  6. ACYCLOVIR SODIUM [Concomitant]
     Dosage: 200 MG, TID
     Route: 042
     Dates: start: 20100520
  7. ACYCLOVIR SODIUM [Concomitant]
  8. ACETAMINOPHEN [Concomitant]
     Indication: PRODUCT USED FOR UNKNOWN INDICATION
     Dosage: UNK
     Route: 048
     Dates: start: 20100515
  9. ALBUMIN (HUMAN) [Concomitant]
     Indication: PRODUCT USED FOR UNKNOWN INDICATION
     Dosage: UNK
     Route: 042
     Dates: start: 20100527, end: 20100527
  10. ALLOPURINOL [Concomitant]
     Indication: PROPHYLAXIS
     Dosage: UNK
     Route: 048
     Dates: start: 20100514, end: 20100518
  11. ACTIVASE [Concomitant]
     Indication: PRODUCT USED FOR UNKNOWN INDICATION
     Dosage: UNK
     Route: 050
     Dates: start: 20100519, end: 20100531
  12. AMOXICILLIN [Concomitant]
     Indication: PRODUCT USED FOR UNKNOWN INDICATION
     Dosage: UNK
     Route: 048
     Dates: start: 20100514, end: 20100515
  13. AMPHOTERICIN B [Concomitant]
     Indication: PRODUCT USED FOR UNKNOWN INDICATION
     Dosage: UNK
     Route: 042
     Dates: start: 20100520
  14. CALCIUM CHLORIDE [Concomitant]
     Indication: PROPHYLAXIS
     Dosage: UNK
     Route: 042
     Dates: start: 20100526
  15. CEFEPIME [Concomitant]
     Indication: PROPHYLAXIS
     Dosage: UNK
     Route: 042
     Dates: start: 20100515, end: 20100516
  16. CHLOROTHIAZIDE [Concomitant]
     Indication: PRODUCT USED FOR UNKNOWN INDICATION
     Dosage: UNK
     Route: 042
     Dates: start: 20100525
  17. CIPROFLOXACIN [Concomitant]
     Indication: PROPHYLAXIS
     Dosage: UNK
     Route: 048
     Dates: start: 20100514, end: 20100515
  18. CLONIDINE [Concomitant]
     Indication: PRODUCT USED FOR UNKNOWN INDICATION
     Dosage: UNK
     Route: 050
     Dates: start: 20100607
  19. DAPTOMYCIN [Concomitant]
     Indication: PRODUCT USED FOR UNKNOWN INDICATION
     Dosage: UNK
     Route: 042
     Dates: start: 20100608
  20. DIPHENHYDRAMINE [Concomitant]
     Indication: PRODUCT USED FOR UNKNOWN INDICATION
     Dosage: UNK
     Route: 042
     Dates: start: 20100514
  21. FLUCONAZOLE [Concomitant]
     Indication: PROPHYLAXIS
     Dosage: UNK
     Route: 048
     Dates: start: 20100408, end: 20100516

REACTIONS (5)
  - BONE MARROW FAILURE [None]
  - CARDIAC FAILURE CONGESTIVE [None]
  - ENTEROCOCCAL BACTERAEMIA [None]
  - FUNGAL SKIN INFECTION [None]
  - PNEUMONIA FUNGAL [None]
